FAERS Safety Report 17960469 (Version 1)
Quarter: 2020Q2

REPORT INFORMATION
  Report Type: Spontaneous
  Country: BE (occurrence: BE)
  Receive Date: 20200630
  Receipt Date: 20200630
  Transmission Date: 20200714
  Serious: Yes (Death, Life-Threatening, Hospitalization, Other)
  Sender: FDA-Public Use
  Company Number: BE-MYLANLABS-V-DE-2007-1570

PATIENT
  Age: 28 Year
  Sex: Male

DRUGS (4)
  1. GLUCOSE [Concomitant]
     Active Substance: DEXTROSE
     Indication: HYPOGLYCAEMIA
     Dosage: UNK
  2. SODIUM BICARBONATE. [Concomitant]
     Active Substance: SODIUM BICARBONATE
     Indication: HYPOGLYCAEMIA
     Dosage: UNK
  3. TRAMADOL. [Suspect]
     Active Substance: TRAMADOL
     Indication: ABDOMINAL DISCOMFORT
     Dosage: UNK
  4. TRAMADOL. [Suspect]
     Active Substance: TRAMADOL
     Indication: ABDOMINAL PAIN

REACTIONS (17)
  - Overdose [Fatal]
  - Lung consolidation [Fatal]
  - Apnoea [Recovered/Resolved]
  - Hypoglycaemia [Not Recovered/Not Resolved]
  - Acute hepatic failure [Fatal]
  - Coma scale abnormal [Not Recovered/Not Resolved]
  - Pupillary reflex impaired [Unknown]
  - Poisoning [Fatal]
  - Acidosis [Not Recovered/Not Resolved]
  - Areflexia [Unknown]
  - Acute kidney injury [Fatal]
  - Metabolic acidosis [Not Recovered/Not Resolved]
  - Sinus tachycardia [Not Recovered/Not Resolved]
  - Multiple organ dysfunction syndrome [Fatal]
  - Pulmonary oedema [Unknown]
  - Gastrointestinal haemorrhage [Unknown]
  - Cardiac arrest [Recovered/Resolved]
